FAERS Safety Report 9802260 (Version 2)
Quarter: 2014Q3

REPORT INFORMATION
  Report Type: Spontaneous
  Country: US (occurrence: US)
  Receive Date: 20140107
  Receipt Date: 20140805
  Transmission Date: 20150326
  Serious: Yes (Other)
  Sender: FDA-Public Use
  Company Number: US-009507513-1401USA002044

PATIENT
  Sex: Female
  Weight: 134.24 kg

DRUGS (1)
  1. NUVARING [Suspect]
     Active Substance: ETHINYL ESTRADIOL\ETONOGESTREL
     Indication: PRODUCT USED FOR UNKNOWN INDICATION
     Dosage: UNK
     Route: 067
     Dates: start: 200807

REACTIONS (10)
  - Microcytic anaemia [Unknown]
  - Mammoplasty [Unknown]
  - Bunion operation [Unknown]
  - Palpitations [Unknown]
  - Deep vein thrombosis [Unknown]
  - Stress [Unknown]
  - Ecchymosis [Recovering/Resolving]
  - Anxiety [Unknown]
  - Pulmonary embolism [Unknown]
  - Deep vein thrombosis [Not Recovered/Not Resolved]

NARRATIVE: CASE EVENT DATE: 20090727
